FAERS Safety Report 7802257-3 (Version None)
Quarter: 2011Q4

REPORT INFORMATION
  Report Type: 
  Country: None (occurrence: None)
  Receive Date: 20111007
  Receipt Date: 20111005
  Transmission Date: 20120403
  Serious: Yes (Life-Threatening, Hospitalization)
  Sender: FDA-Public Use
  Company Number: JP-ABBOTT-11P-087-0729472-00

PATIENT
  Sex: Male
  Weight: 14.7 kg

DRUGS (5)
  1. ASVERIN [Concomitant]
     Indication: PRODUCT USED FOR UNKNOWN INDICATION
     Dosage: DRY SYRUP
     Dates: start: 20110414
  2. MUCOSOLVAN [Concomitant]
     Indication: PRODUCT USED FOR UNKNOWN INDICATION
     Dosage: DRY SYRUP
     Dates: start: 20110414
  3. MUCODYNE [Concomitant]
     Indication: PRODUCT USED FOR UNKNOWN INDICATION
     Dosage: DRY SYRUP
     Route: 048
     Dates: start: 20110414
  4. AMOXICILLIN [Suspect]
     Indication: STREPTOCOCCAL INFECTION
     Route: 048
     Dates: start: 20110414, end: 20110415
  5. CEFDINIR [Suspect]
     Indication: STREPTOCOCCAL INFECTION
     Route: 048
     Dates: start: 20110415, end: 20110416

REACTIONS (1)
  - ANAPHYLACTIC REACTION [None]
